FAERS Safety Report 7404336-1 (Version None)
Quarter: 2011Q2

REPORT INFORMATION
  Report Type: 
  Country: None (occurrence: None)
  Receive Date: 20110408
  Receipt Date: 20110406
  Transmission Date: 20111010
  Serious: Yes (Other)
  Sender: FDA-Public Use
  Company Number: US-BAXTER-2011BH006919

PATIENT
  Age: 60 Year
  Sex: Male
  Weight: 97 kg

DRUGS (5)
  1. GAMMAGARD LIQUID [Suspect]
     Indication: MULTIFOCAL MOTOR NEUROPATHY
     Route: 042
     Dates: start: 20110302, end: 20110302
  2. GAMMAGARD LIQUID [Suspect]
     Indication: OFF LABEL USE
     Route: 042
     Dates: start: 20110302, end: 20110302
  3. GAMMAGARD LIQUID [Suspect]
     Route: 042
     Dates: start: 19980101
  4. GAMMAGARD LIQUID [Suspect]
     Route: 042
     Dates: start: 19980101
  5. LEVOTHYROXINE [Concomitant]
     Indication: THYROID DISORDER

REACTIONS (5)
  - ORAL HERPES [None]
  - ANAPHYLACTIC REACTION [None]
  - RASH [None]
  - HYPERSENSITIVITY [None]
  - INFLUENZA LIKE ILLNESS [None]
